FAERS Safety Report 14048488 (Version 2)
Quarter: 2018Q1

REPORT INFORMATION
  Report Type: Spontaneous
  Country: US (occurrence: US)
  Receive Date: 20171005
  Receipt Date: 20180320
  Transmission Date: 20180508
  Serious: Yes (Other)
  Sender: FDA-Public Use
  Company Number: US-SA-2017SA177643

PATIENT
  Age: 44 Year
  Sex: Female

DRUGS (6)
  1. ACYCLOVIR. [Concomitant]
     Active Substance: ACYCLOVIR
     Route: 048
     Dates: start: 20170826
  2. AMPYRA [Concomitant]
     Active Substance: DALFAMPRIDINE
     Indication: ATAXIA
     Route: 048
  3. AMPYRA [Concomitant]
     Active Substance: DALFAMPRIDINE
     Indication: MUSCLE SPASTICITY
     Route: 048
  4. BACLOFEN. [Concomitant]
     Active Substance: BACLOFEN
     Indication: MUSCLE SPASTICITY
     Dosage: FREQUENCY: PPW
     Route: 048
     Dates: start: 2006
  5. LEMTRADA [Suspect]
     Active Substance: ALEMTUZUMAB
     Route: 041
     Dates: start: 20170828, end: 20170901
  6. TIZANIDINE. [Concomitant]
     Active Substance: TIZANIDINE
     Indication: MUSCLE SPASTICITY
     Route: 048
     Dates: start: 2010

REACTIONS (8)
  - Pyrexia [Unknown]
  - Dyspepsia [Unknown]
  - Encephalitis [Recovered/Resolved]
  - Neck pain [Unknown]
  - Listeriosis [Unknown]
  - Nausea [Unknown]
  - Pain [Unknown]
  - Abdominal pain upper [Unknown]

NARRATIVE: CASE EVENT DATE: 20170911
